FAERS Safety Report 10425492 (Version 1)
Quarter: 2014Q2

REPORT INFORMATION
  Report Type: Spontaneous
  Country: US (occurrence: None)
  Receive Date: 20140625
  Receipt Date: 20140625
  Transmission Date: 20141212
  Serious: No
  Sender: FDA-Public Use
  Company Number: AP356-00825-SPO-US

PATIENT
  Age: 52 Year
  Sex: Female
  Weight: 110 kg

DRUGS (3)
  1. BELVIQ (LORCASERIN HYDROCHLORIDE) [Suspect]
     Indication: WEIGHT DECREASED
     Route: 048
     Dates: start: 201405
  2. TRIAMTERENE [Concomitant]
  3. BENICAR (OLMESARTAN MEDOXOMIL) [Concomitant]

REACTIONS (1)
  - Somnolence [None]
